FAERS Safety Report 10034380 (Version 2)
Quarter: 2014Q1

REPORT INFORMATION
  Report Type: Spontaneous
  Country: US (occurrence: US)
  Receive Date: 20140325
  Receipt Date: 20140325
  Transmission Date: 20141002
  Serious: Yes (Hospitalization)
  Sender: FDA-Public Use
  Company Number: US-AMGEN-USASP2014011139

PATIENT
  Age: 69 Year
  Sex: Female
  Weight: 75.7 kg

DRUGS (2)
  1. PROLIA [Suspect]
     Indication: OSTEOPOROSIS POSTMENOPAUSAL
     Dosage: 60 MG, Q6MO
     Route: 058
     Dates: start: 20130510
  2. ASPIRIN [Concomitant]
     Dosage: 1-325 MG, QD
     Route: 065

REACTIONS (21)
  - Vomiting [Recovered/Resolved]
  - Nausea [Recovered/Resolved]
  - Pain [Recovering/Resolving]
  - Vertigo [Recovering/Resolving]
  - Drug hypersensitivity [Recovered/Resolved]
  - Neck pain [Recovering/Resolving]
  - Macule [Recovering/Resolving]
  - Blister [Recovering/Resolving]
  - Blister infected [Recovered/Resolved]
  - Stomatitis [Recovered/Resolved]
  - Vaginal infection [Unknown]
  - Muscle tightness [Unknown]
  - Feeling abnormal [Unknown]
  - Rash pruritic [Not Recovered/Not Resolved]
  - Skin irritation [Not Recovered/Not Resolved]
  - Dry skin [Unknown]
  - Skin oedema [Unknown]
  - Pruritus [Not Recovered/Not Resolved]
  - Musculoskeletal pain [Recovering/Resolving]
  - Erythema [Not Recovered/Not Resolved]
  - Rash [Not Recovered/Not Resolved]
